FAERS Safety Report 13338738 (Version 2)
Quarter: 2017Q2

REPORT INFORMATION
  Report Type: Spontaneous
  Country: US (occurrence: US)
  Receive Date: 20170315
  Receipt Date: 20170609
  Transmission Date: 20170830
  Serious: Yes (Other)
  Sender: FDA-Public Use
  Company Number: US-SAOL THERAPEUTICS-2017SAO00381

PATIENT
  Age: 51 Year
  Sex: Male

DRUGS (12)
  1. LIORESAL [Suspect]
     Active Substance: BACLOFEN
     Dosage: 120 ?G, \DAY
     Route: 037
  2. COMPOUNDED BACLOFEN [Suspect]
     Active Substance: BACLOFEN
     Dosage: 120 ?G, \DAY
     Route: 037
  3. LIORESAL [Suspect]
     Active Substance: BACLOFEN
     Indication: MUSCLE SPASTICITY
     Dosage: 20 ?G, \DAY
     Route: 037
     Dates: start: 20161129
  4. LIORESAL [Suspect]
     Active Substance: BACLOFEN
     Indication: MULTIPLE SCLEROSIS
  5. LIORESAL [Suspect]
     Active Substance: BACLOFEN
     Indication: MULTIPLE SCLEROSIS
     Dosage: 30 ?G, \DAY
     Route: 037
  6. LIORESAL [Suspect]
     Active Substance: BACLOFEN
     Dosage: 150 ?G, \DAY
     Route: 037
  7. LIORESAL [Suspect]
     Active Substance: BACLOFEN
     Dosage: 40 ?G, \DAY
     Route: 037
  8. COMPOUNDED BACLOFEN [Suspect]
     Active Substance: BACLOFEN
     Dosage: 160 ?G, \DAY
     Route: 037
  9. LIORESAL [Suspect]
     Active Substance: BACLOFEN
     Indication: MUSCLE SPASTICITY
     Dosage: 40 ?G, \DAY
     Route: 037
  10. LIORESAL [Suspect]
     Active Substance: BACLOFEN
     Dosage: 70 ?G, \DAY
     Route: 037
     Dates: start: 20161214
  11. LIORESAL [Suspect]
     Active Substance: BACLOFEN
     Dosage: 50 ?G, \DAY
     Route: 037
  12. LIORESAL [Suspect]
     Active Substance: BACLOFEN
     Dosage: 100 ?G, \DAY
     Route: 037

REACTIONS (10)
  - Dysstasia [Recovering/Resolving]
  - Muscle spasms [Recovering/Resolving]
  - Mobility decreased [Recovering/Resolving]
  - Complication associated with device [Recovered/Resolved]
  - Musculoskeletal stiffness [Recovering/Resolving]
  - Malaise [Unknown]
  - Hypotonia [Recovering/Resolving]
  - Muscle spasticity [Recovered/Resolved]
  - Therapy non-responder [Recovered/Resolved]
  - Fall [Unknown]

NARRATIVE: CASE EVENT DATE: 20161129
